FAERS Safety Report 9678579 (Version 1)
Quarter: 2013Q4

REPORT INFORMATION
  Report Type: Report from Study
  Country: US (occurrence: US)
  Receive Date: 20131108
  Receipt Date: 20131108
  Transmission Date: 20140711
  Serious: Yes (Other)
  Sender: FDA-Public Use
  Company Number: US-BAXTER-2013BAX043158

PATIENT
  Age: 49 Year
  Sex: Male
  Weight: 72.8 kg

DRUGS (2)
  1. CYCLOPHOSPHAMIDE FOR INJECTION, USP [Suspect]
     Indication: PLASMA CELL MYELOMA
     Route: 042
     Dates: start: 20130805
  2. VELCADE [Suspect]
     Indication: PLASMA CELL MYELOMA
     Route: 042

REACTIONS (1)
  - Ischaemic stroke [Recovered/Resolved]
